FAERS Safety Report 6328297-1 (Version None)
Quarter: 2009Q3

REPORT INFORMATION
  Report Type: 
  Country: None (occurrence: None)
  Receive Date: 20090825
  Receipt Date: 20090717
  Transmission Date: 20100115
  Serious: No
  Sender: FDA-Public Use
  Company Number: US-ABBOTT-09P-163-0578989-00

PATIENT
  Sex: Female
  Weight: 79.45 kg

DRUGS (7)
  1. SYNTHROID [Suspect]
     Indication: HYPOTHYROIDISM
     Route: 048
     Dates: start: 20090430, end: 20090531
  2. SYNTHROID [Suspect]
     Route: 048
     Dates: start: 20090531
  3. ATACAND [Concomitant]
     Indication: HYPERTENSION
  4. CALCIUM [Concomitant]
     Indication: DRUG USE FOR UNKNOWN INDICATION
  5. MULTI-VITAMIN [Concomitant]
     Indication: DRUG USE FOR UNKNOWN INDICATION
  6. FISH OIL [Concomitant]
     Indication: DRUG USE FOR UNKNOWN INDICATION
  7. SINGULAIR [Concomitant]
     Indication: HYPERSENSITIVITY
     Dates: start: 20090501

REACTIONS (5)
  - ARTHRALGIA [None]
  - DYSPNOEA EXERTIONAL [None]
  - FATIGUE [None]
  - MOBILITY DECREASED [None]
  - MUSCLE SPASMS [None]
